FAERS Safety Report 7639472-8 (Version None)
Quarter: 2011Q3

REPORT INFORMATION
  Report Type: 
  Country: None (occurrence: None)
  Receive Date: 20110727
  Receipt Date: 20110721
  Transmission Date: 20111222
  Serious: Yes (Other)
  Sender: FDA-Public Use
  Company Number: US-GLAXOSMITHKLINE-A0937569A

PATIENT
  Sex: Female

DRUGS (2)
  1. ZOFRAN [Suspect]
     Indication: PROPHYLAXIS OF NAUSEA AND VOMITING
     Route: 064
     Dates: start: 19960101
  2. NORTRIPTYLINE HCL [Concomitant]

REACTIONS (9)
  - OBSTRUCTIVE AIRWAYS DISORDER [None]
  - HEADACHE [None]
  - RESPIRATORY ARREST [None]
  - SKIN WARM [None]
  - RESPIRATORY SYNCYTIAL VIRUS INFECTION [None]
  - MIGRAINE [None]
  - CONNECTIVE TISSUE DISORDER [None]
  - RHEUMATOID ARTHRITIS [None]
  - MATERNAL EXPOSURE DURING PREGNANCY [None]
